FAERS Safety Report 8016843-1 (Version None)
Quarter: 2012Q1

REPORT INFORMATION
  Report Type: 
  Country: None (occurrence: None)
  Receive Date: 20120102
  Receipt Date: 20111229
  Transmission Date: 20120608
  Serious: Yes (Hospitalization)
  Sender: FDA-Public Use
  Company Number: US-AMGEN-USACT2011065544

PATIENT
  Age: 68 Year

DRUGS (7)
  1. METOLAZONE [Concomitant]
     Dosage: 5 G, QD
  2. BLINDED DARBEPOETIN ALFA [Suspect]
     Indication: CARDIAC FAILURE
     Dates: start: 20091222
  3. BLINDED DARBEPOETIN ALFA [Suspect]
     Dates: start: 20091222
  4. BLINDED PLACEBO [Suspect]
     Indication: CARDIAC FAILURE
     Dates: start: 20091222
  5. EXFORGE [Concomitant]
     Indication: HYPERTENSION
     Dosage: UNK UNK, QD
  6. METOPROLOL [Concomitant]
     Indication: HYPERTENSION
     Dosage: 50 MG, QD
  7. LISINOPRIL [Concomitant]
     Indication: HYPERTENSION
     Dosage: 20 MG, QD

REACTIONS (1)
  - HYPERTENSIVE CRISIS [None]
